FAERS Safety Report 8851946 (Version 2)
Quarter: 2012Q4

REPORT INFORMATION
  Report Type: 
  Country: US (occurrence: US)
  Receive Date: 20121022
  Receipt Date: 20121217
  Transmission Date: 20130627
  Serious: Yes (Hospitalization, Other)
  Sender: FDA-Public Use
  Company Number: US-ELI_LILLY_AND_COMPANY-US201210003841

PATIENT
  Age: 53 Year
  Sex: Female
  Weight: 70.3 kg

DRUGS (8)
  1. ZYPREXA RELPREVV [Suspect]
     Indication: SCHIZOPHRENIA, PARANOID TYPE
     Dosage: 405 mg, unknown
     Route: 030
     Dates: start: 20110519
  2. ZYPREXA RELPREVV [Suspect]
     Dosage: 300 mg, 2/M
     Route: 030
     Dates: start: 20120814
  3. ZYPREXA RELPREVV [Suspect]
     Dosage: 300 mg, 2/M
     Route: 030
     Dates: start: 20120925
  4. ZYPREXA RELPREVV [Suspect]
     Dosage: 300 mg, 2/M
     Dates: start: 20121012
  5. KLONOPIN [Concomitant]
     Dosage: 1 mg, qid
  6. AMBIEN [Concomitant]
     Dosage: 10 mg, each evening
  7. RITALIN [Concomitant]
     Dosage: 20 mg, UNK
     Route: 048
  8. XANAX [Concomitant]
     Dosage: UNK
     Dates: end: 20121019

REACTIONS (6)
  - Schizophrenia, paranoid type [Recovering/Resolving]
  - Suicidal ideation [Recovering/Resolving]
  - Red blood cell count decreased [Unknown]
  - Blood glucose increased [Unknown]
  - Blood cholesterol increased [Unknown]
  - Blood thyroid stimulating hormone increased [Unknown]
